FAERS Safety Report 16627853 (Version 1)
Quarter: 2019Q3

REPORT INFORMATION
  Report Type: Spontaneous
  Country: US (occurrence: US)
  Receive Date: 20190724
  Receipt Date: 20190724
  Transmission Date: 20191004
  Serious: No
  Sender: FDA-Public Use
  Company Number: US-JNJFOC-20190704871

PATIENT
  Age: 43 Year
  Sex: Male
  Weight: 90.8 kg

DRUGS (2)
  1. DURAGESIC [Suspect]
     Active Substance: FENTANYL
     Indication: PRODUCT USED FOR UNKNOWN INDICATION
     Route: 062
     Dates: end: 201906
  2. DURAGESIC [Suspect]
     Active Substance: FENTANYL
     Route: 062
     Dates: start: 201906

REACTIONS (8)
  - Stress [Unknown]
  - Incorrect dose administered [Unknown]
  - Withdrawal syndrome [Not Recovered/Not Resolved]
  - Pain [Not Recovered/Not Resolved]
  - Drug tolerance increased [Not Recovered/Not Resolved]
  - Palpitations [Recovered/Resolved]
  - Abnormal loss of weight [Recovered/Resolved]
  - Off label use [Unknown]

NARRATIVE: CASE EVENT DATE: 201901
